FAERS Safety Report 6357768-7 (Version None)
Quarter: 2009Q3

REPORT INFORMATION
  Report Type: 
  Country: None (occurrence: None)
  Receive Date: 20090916
  Receipt Date: 20090908
  Transmission Date: 20100115
  Serious: Yes (Death, Hospitalization)
  Sender: FDA-Public Use
  Company Number: JP-BAYER-200913092BYL

PATIENT
  Age: 83 Year
  Sex: Female

DRUGS (10)
  1. NEXAVAR [Suspect]
     Indication: RENAL CELL CARCINOMA STAGE IV
     Dosage: TOTAL DAILY DOSE: 800 MG  UNIT DOSE: 200 MG
     Route: 048
     Dates: start: 20090711, end: 20090724
  2. GANATON [Concomitant]
     Route: 048
  3. MERISLON [Concomitant]
     Route: 048
  4. PROTECADIN [Concomitant]
     Route: 048
  5. MOBIC [Concomitant]
     Route: 048
  6. ADALAT CC [Concomitant]
     Route: 048
  7. DIOVAN [Concomitant]
     Route: 048
  8. CODEINE PHOSPHATE [Concomitant]
     Route: 048
  9. OXYGEN [Concomitant]
     Route: 055
     Dates: start: 20090726
  10. OXYGEN [Concomitant]
     Route: 055
     Dates: start: 20090728

REACTIONS (4)
  - DERMATITIS [None]
  - PYREXIA [None]
  - RESPIRATORY FAILURE [None]
  - STOMATITIS [None]
